FAERS Safety Report 4429325-0 (Version None)
Quarter: 2004Q3

REPORT INFORMATION
  Report Type: 
  Country: None (occurrence: None)
  Receive Date: 20040818
  Receipt Date: 20040818
  Transmission Date: 20050211
  Serious: Yes (Hospitalization)
  Sender: FDA-Public Use
  Company Number: None

PATIENT
  Age: 85 Year
  Sex: Male
  Weight: 71 kg

DRUGS (1)
  1. LEVOFLOXACIN [Suspect]
     Dosage: 250 MG QD ORAL
     Route: 048
     Dates: start: 20040103, end: 20040105

REACTIONS (2)
  - HYPERSENSITIVITY [None]
  - NEPHRITIS INTERSTITIAL [None]
